FAERS Safety Report 22788043 (Version 2)
Quarter: 2024Q3

REPORT INFORMATION
  Report Type: Spontaneous
  Country: US (occurrence: US)
  Receive Date: 20230804
  Receipt Date: 20240826
  Transmission Date: 20241016
  Serious: Yes (Other)
  Sender: pharmaAND
  Company Number: US-PHARMAAND-2023PHR00023

PATIENT
  Age: 61 Year
  Sex: Female
  Weight: 78.005 kg

DRUGS (33)
  1. PEGASYS [Suspect]
     Active Substance: PEGINTERFERON ALFA-2A
     Indication: Neoplasm malignant
     Dosage: 45 ?G, 1X/WEEK
     Dates: start: 201908
  2. PEGASYS [Suspect]
     Active Substance: PEGINTERFERON ALFA-2A
     Indication: Polycythaemia vera
     Dosage: 45 ?G, 2X/MONTH
     Dates: end: 202004
  3. PEGASYS [Suspect]
     Active Substance: PEGINTERFERON ALFA-2A
     Indication: Janus kinase 2 mutation
     Dosage: 45 ?G, 2X/MONTH
     Dates: start: 202006, end: 2023
  4. PEGASYS [Suspect]
     Active Substance: PEGINTERFERON ALFA-2A
     Dosage: 45 ?G, 2X/MONTH
     Dates: start: 2023, end: 20231010
  5. JAKAFI [Suspect]
     Active Substance: RUXOLITINIB
     Indication: Neoplasm malignant
     Dosage: UNK
     Dates: start: 201908, end: 202002
  6. JAKAFI [Suspect]
     Active Substance: RUXOLITINIB
     Indication: Polycythaemia
     Dosage: UNK
     Dates: start: 202205, end: 202208
  7. JAKAFI [Suspect]
     Active Substance: RUXOLITINIB
     Dosage: UNK
     Dates: start: 2023, end: 202304
  8. HYDROXYUREA [Suspect]
     Active Substance: HYDROXYUREA
     Dosage: UNK
     Dates: start: 2020, end: 2021
  9. HYDROXYUREA [Suspect]
     Active Substance: HYDROXYUREA
     Dosage: UNK
  10. HYDROXYUREA [Suspect]
     Active Substance: HYDROXYUREA
     Dosage: UNK
     Dates: start: 202304, end: 2023
  11. ATORVASTATIN [Suspect]
     Active Substance: ATORVASTATIN
     Dosage: UNK
     Dates: end: 2023
  12. ALLOPURINOL [Concomitant]
     Active Substance: ALLOPURINOL
     Dosage: UNK
     Dates: start: 2020
  13. CARVEDILOL [Concomitant]
     Active Substance: CARVEDILOL
  14. IRBESARTAN [Concomitant]
     Active Substance: IRBESARTAN
  15. LEVOTHYROXINE [Concomitant]
     Active Substance: LEVOTHYROXINE\LEVOTHYROXINE SODIUM
  16. PANTOPRAZOLE [Concomitant]
     Active Substance: PANTOPRAZOLE
  17. SERTRALINE [Concomitant]
     Active Substance: SERTRALINE HYDROCHLORIDE
  18. TAMSULOSIN [Concomitant]
     Active Substance: TAMSULOSIN
  19. VALACYCLOVIR [Concomitant]
     Active Substance: VALACYCLOVIR HYDROCHLORIDE
  20. ALPRAZOLAM [Concomitant]
     Active Substance: ALPRAZOLAM
     Dosage: UNK, AS NEEDED
  21. CLONIDINE HYDROCHLORIDE [Concomitant]
     Active Substance: CLONIDINE HYDROCHLORIDE
     Dosage: UNK, AS NEEDED
  22. VITAMIN B1 [Concomitant]
     Active Substance: THIAMINE HYDROCHLORIDE
  23. VITAMIN B6 [Concomitant]
     Active Substance: PYRIDOXINE HYDROCHLORIDE
  24. VITAMIN C [Concomitant]
     Active Substance: ASCORBIC ACID
  25. VITAMIN D3 [Concomitant]
     Active Substance: CHOLECALCIFEROL
  26. COENZYME Q10 [Concomitant]
     Active Substance: DIETARY SUPPLEMENT\UBIDECARENONE
  27. MIRALAX [Concomitant]
     Active Substance: POLYETHYLENE GLYCOL 3350
     Dosage: EVERY DAY
  28. CLARITIN [Concomitant]
     Active Substance: LORATADINE
  29. XIIDRA [Concomitant]
     Active Substance: LIFITEGRAST
  30. ASPIRIN [Concomitant]
     Active Substance: ASPIRIN
     Dosage: UNK, DAILY
  31. METAMUCIL THERAPY FOR REGULARITY [Concomitant]
     Active Substance: PSYLLIUM HUSK
     Dosage: UNK, AS NEEDED
  32. INREBIC [Concomitant]
     Active Substance: FEDRATINIB HYDROCHLORIDE
     Dosage: UNK
     Dates: start: 20230912
  33. OXYCODONE [Concomitant]
     Active Substance: OXYCODONE
     Dosage: UNK, AS NEEDED (MAYBE ONCE PER WEEK)

REACTIONS (18)
  - Hepatitis [Unknown]
  - Angina pectoris [Recovered/Resolved]
  - Neuropathy peripheral [Unknown]
  - Aspartate aminotransferase increased [Not Recovered/Not Resolved]
  - Alanine aminotransferase increased [Not Recovered/Not Resolved]
  - Joint swelling [Unknown]
  - Folliculitis [Unknown]
  - Platelet count increased [Unknown]
  - Blood test abnormal [Unknown]
  - Bone pain [Unknown]
  - Skin irritation [Unknown]
  - Burning sensation [Unknown]
  - Malaise [Not Recovered/Not Resolved]
  - Pruritus [Unknown]
  - Rash [Unknown]
  - Hepatic steatosis [Unknown]
  - Unevaluable event [Unknown]
  - Off label use [Recovered/Resolved]

NARRATIVE: CASE EVENT DATE: 20190801
